FAERS Safety Report 21389936 (Version 1)
Quarter: 2022Q3

REPORT INFORMATION
  Report Type: Spontaneous
  Country: DE (occurrence: DE)
  Receive Date: 20220929
  Receipt Date: 20220929
  Transmission Date: 20221027
  Serious: Yes (Hospitalization, Other)
  Sender: FDA-Public Use
  Company Number: DE-SUN PHARMACEUTICAL INDUSTRIES LTD-2022RR-356281

PATIENT
  Age: 55 Year
  Sex: Female
  Weight: 108 kg

DRUGS (11)
  1. PANTOPRAZOLE SODIUM [Suspect]
     Active Substance: PANTOPRAZOLE SODIUM
     Indication: Product used for unknown indication
     Dosage: 40 MG, 1-0-0-0, TABLET
     Route: 048
  2. QUETIAPINE [Suspect]
     Active Substance: QUETIAPINE
     Indication: Product used for unknown indication
     Dosage: 300 MG, 0-0-2-0, RETARD-TABLETTEN
     Route: 048
  3. QUETIAPINE [Suspect]
     Active Substance: QUETIAPINE
     Dosage: 150 MG, 0-0-1-0, RETARD-TABLETTEN
     Route: 048
  4. ZUCLOPENTHIXOL [Suspect]
     Active Substance: ZUCLOPENTHIXOL
     Indication: Product used for unknown indication
     Dosage: 10 MG, 0-0-3-0, TABLET
     Route: 048
  5. AZITHROMYCIN [Suspect]
     Active Substance: AZITHROMYCIN
     Indication: Product used for unknown indication
     Dosage: 500 MG, 24022020 TO 26022020, TABLETS
     Route: 048
  6. TOPIRAMATE [Concomitant]
     Active Substance: TOPIRAMATE
     Indication: Product used for unknown indication
     Dosage: 25 MG, 0-0-2-0, TABLET
     Route: 048
  7. RAMIPRIL [Concomitant]
     Active Substance: RAMIPRIL
     Indication: Product used for unknown indication
     Dosage: 2.5 MG, 1-0-0-0, TABLET
     Route: 048
  8. RIVAROXABAN [Concomitant]
     Active Substance: RIVAROXABAN
     Indication: Product used for unknown indication
     Dosage: NK MG, 1-0-0-0, TABLET
     Route: 048
  9. TORSEMIDE [Concomitant]
     Active Substance: TORSEMIDE
     Indication: Product used for unknown indication
     Dosage: 10 MG, 2-0-0-0, TABLET
     Route: 048
  10. LEVOTHYROXINE SODIUM [Concomitant]
     Active Substance: LEVOTHYROXINE SODIUM
     Indication: Product used for unknown indication
     Dosage: 100 ?G, 1-0-0-0, TABLET
     Route: 048
  11. SPIRONOLACTONE [Concomitant]
     Active Substance: SPIRONOLACTONE
     Indication: Product used for unknown indication
     Dosage: 100 MG, 1-0-0-0, TABLET
     Route: 048

REACTIONS (8)
  - Abdominal pain [Unknown]
  - Restlessness [Unknown]
  - Electrocardiogram QT prolonged [Unknown]
  - Product prescribing error [Unknown]
  - Agitation [Unknown]
  - Condition aggravated [Unknown]
  - General physical health deterioration [Unknown]
  - Schizoaffective disorder [Unknown]

NARRATIVE: CASE EVENT DATE: 20200224
